FAERS Safety Report 8932387 (Version 1)
Quarter: 2012Q4

REPORT INFORMATION
  Report Type: 
  Country: US (occurrence: US)
  Receive Date: 20121128
  Receipt Date: 20121128
  Transmission Date: 20130627
  Serious: Yes (Other)
  Sender: FDA-Public Use
  Company Number: US-PFIZER INC-2012296568

PATIENT
  Age: 56 Year
  Sex: Male
  Weight: 100.68 kg

DRUGS (7)
  1. CHANTIX [Suspect]
     Indication: SMOKING CESSATION THERAPY
     Dosage: 0.5 mg, 1x/day
     Dates: start: 20121030
  2. CHANTIX [Suspect]
     Dosage: 0.5 mg, 2x/day
  3. CHANTIX [Suspect]
     Dosage: 1 mg, 1x/day
  4. CHANTIX [Suspect]
     Dosage: 1 mg, 2x/day
  5. CIPRO [Concomitant]
     Indication: URINARY TRACT INFECTION
     Dosage: 500 mg, 2x/day
  6. GEMFIBROZIL [Concomitant]
     Indication: TRIGLYCERIDES HIGH
     Dosage: 600 mg, UNK
  7. TESTOSTERONE [Concomitant]
     Indication: TESTOSTERONE LOW
     Dosage: UNK, every 2 weeks

REACTIONS (5)
  - Thinking abnormal [Not Recovered/Not Resolved]
  - Agitation [Not Recovered/Not Resolved]
  - Depression [Not Recovered/Not Resolved]
  - Hostility [Not Recovered/Not Resolved]
  - White blood cell count increased [Not Recovered/Not Resolved]
